FAERS Safety Report 6231382-6 (Version None)
Quarter: 2009Q2

REPORT INFORMATION
  Report Type: 
  Country: None (occurrence: None)
  Receive Date: 20090616
  Receipt Date: 20090610
  Transmission Date: 20091009
  Serious: Yes (Hospitalization)
  Sender: FDA-Public Use
  Company Number: A0791586A

PATIENT
  Age: 27 Year
  Sex: Male

DRUGS (1)
  1. NICOTINE LOZENGE [Suspect]
     Indication: DRUG USE FOR UNKNOWN INDICATION
     Route: 002

REACTIONS (9)
  - ABDOMINAL PAIN UPPER [None]
  - CHILLS [None]
  - DIARRHOEA [None]
  - DIZZINESS [None]
  - ERUCTATION [None]
  - HEADACHE [None]
  - INCOHERENT [None]
  - NAUSEA [None]
  - VOMITING [None]
